FAERS Safety Report 7821054-6 (Version None)
Quarter: 2011Q4

REPORT INFORMATION
  Report Type: 
  Country: None (occurrence: None)
  Receive Date: 20111018
  Receipt Date: 20111017
  Transmission Date: 20120403
  Serious: Yes (Other)
  Sender: FDA-Public Use
  Company Number: CA-PFIZER INC-2011045781

PATIENT
  Sex: Female

DRUGS (14)
  1. DICLOFENAC SODIUM [Concomitant]
     Dosage: UNK
  2. VITAMIN D [Concomitant]
     Dosage: UNK
  3. SILDENAFIL [Suspect]
     Indication: PULMONARY HYPERTENSION
     Dosage: 20 MG, UNK
     Dates: start: 20100901, end: 20110201
  4. LANOXIN [Concomitant]
     Dosage: 0.125 MG, UNK
  5. ASPIRIN [Concomitant]
     Dosage: 81 MG, 1X/DAY IN THE MORNING
  6. GLUCOSAMINE W/CHONDROITIN SULFATES [Concomitant]
     Dosage: 900 MG, UNK
  7. AZ A [Concomitant]
     Dosage: 50 MG, 1 TABLET IN THE MORNING AND 2 TABLETS AT BEDTIME
  8. ARTHROTEC [Concomitant]
     Dosage: 75/200 MCG, 2X/DAY
  9. TRACLEER [Concomitant]
     Dosage: 125 MG, 2X/DAY
  10. HYDROXYCHLOROQUINE [Concomitant]
     Dosage: 400 MG, (2X200MG) IN THE MORNING
  11. VITAMIN E [Concomitant]
     Dosage: UNK
  12. REVATIO [Suspect]
     Indication: PULMONARY HYPERTENSION
     Dosage: UNK
     Dates: start: 20070101, end: 20100901
  13. CALCIUM [Concomitant]
     Dosage: 500 MG, UNK
  14. SYNTHROID [Concomitant]
     Dosage: 0.125 MG, 1X/DAY (MORNING)

REACTIONS (4)
  - CONVULSION [None]
  - PULMONARY HYPERTENSION [None]
  - SYNCOPE [None]
  - DYSPNOEA [None]
